FAERS Safety Report 12980332 (Version 1)
Quarter: 2016Q4

REPORT INFORMATION
  Report Type: Spontaneous
  Country: US (occurrence: US)
  Receive Date: 20161128
  Receipt Date: 20161128
  Transmission Date: 20170207
  Serious: Yes (Other)
  Sender: FDA-Public Use
  Company Number: US-ELI_LILLY_AND_COMPANY-US201607007902

PATIENT
  Sex: Male

DRUGS (1)
  1. CYMBALTA [Suspect]
     Active Substance: DULOXETINE HYDROCHLORIDE
     Indication: PRODUCT USED FOR UNKNOWN INDICATION
     Dosage: 60 MG, UNKNOWN
     Route: 065
     Dates: start: 20051214

REACTIONS (13)
  - Confusional state [Unknown]
  - Memory impairment [Unknown]
  - Nightmare [Unknown]
  - Paraesthesia [Unknown]
  - Suicidal ideation [Unknown]
  - Hallucination [Unknown]
  - Dizziness [Unknown]
  - Agitation [Unknown]
  - Insomnia [Unknown]
  - Drug withdrawal syndrome [Unknown]
  - Irritability [Unknown]
  - Balance disorder [Unknown]
  - Disturbance in attention [Unknown]
